FAERS Safety Report 8186788-5 (Version None)
Quarter: 2012Q1

REPORT INFORMATION
  Report Type: 
  Country: None (occurrence: None)
  Receive Date: 20120306
  Receipt Date: 20120306
  Transmission Date: 20120608
  Serious: Yes (Other)
  Sender: FDA-Public Use
  Company Number: None

PATIENT
  Sex: Female
  Weight: 63.502 kg

DRUGS (2)
  1. LUPRON DEPOT [Suspect]
     Indication: ENDOMETRIOSIS
     Dosage: 3.75
     Dates: start: 20091001, end: 20100301
  2. LUPRON DEPOT [Concomitant]
     Dosage: 3.75
     Dates: start: 20100801, end: 20110101

REACTIONS (12)
  - AMNESIA [None]
  - HOT FLUSH [None]
  - DIZZINESS [None]
  - VOMITING [None]
  - AFFECT LABILITY [None]
  - CRYING [None]
  - NIGHT SWEATS [None]
  - MENSTRUATION DELAYED [None]
  - NAUSEA [None]
  - SLEEP DISORDER [None]
  - BONE PAIN [None]
  - ANGER [None]
